FAERS Safety Report 9786162 (Version 1)
Quarter: 2013Q4

REPORT INFORMATION
  Report Type: Spontaneous
  Country: IT (occurrence: None)
  Receive Date: 20131224
  Receipt Date: 20131224
  Transmission Date: 20140711
  Serious: Yes (Death)
  Sender: FDA-Public Use
  Company Number: 2013AP010635

PATIENT
  Age: 26 Year
  Sex: Male

DRUGS (4)
  1. CITALOPRAM (CITALOPRAM) [Suspect]
  2. PARACETAMOL (PARACETAMOL) [Concomitant]
  3. DIAMORPHINE (DIAMORPHINE) [Suspect]
  4. CAFFEINE (CAFFEINE) [Suspect]

REACTIONS (2)
  - Overdose [None]
  - Toxicity to various agents [None]
